FAERS Safety Report 9785267 (Version 5)
Quarter: 2014Q2

REPORT INFORMATION
  Report Type: Report from Study
  Country: NL (occurrence: NL)
  Receive Date: 20131227
  Receipt Date: 20140521
  Transmission Date: 20141212
  Serious: Yes (Hospitalization)
  Sender: FDA-Public Use
  Company Number: NL-JNJFOC-20131213078

PATIENT
  Age: 17 Year
  Sex: Female
  Weight: 59.7 kg

DRUGS (2)
  1. REMICADE [Suspect]
     Indication: CROHN^S DISEASE
     Route: 042
     Dates: start: 20120330
  2. HYDROXYCOBALAMINE [Concomitant]
     Route: 065

REACTIONS (1)
  - Abdominal pain [Recovered/Resolved]
